FAERS Safety Report 8238086 (Version 5)
Quarter: 2014Q4

REPORT INFORMATION
  Report Type: Report from Study
  Country: AU (occurrence: AU)
  Receive Date: 20111109
  Receipt Date: 20141205
  Transmission Date: 20150529
  Serious: Yes (Other)
  Sender: FDA-Public Use
  Company Number: PHHY2011AU097415

PATIENT
  Age: 16 Year
  Sex: Male

DRUGS (4)
  1. PREDNISOLONE. [Concomitant]
     Active Substance: PREDNISOLONE
     Indication: GRAFT VERSUS HOST DISEASE IN SKIN
     Route: 065
  2. STI571 [Suspect]
     Active Substance: IMATINIB MESYLATE
     Indication: GRAFT VERSUS HOST DISEASE
     Dosage: 200 MG, QD
     Route: 048
     Dates: start: 20100210
  3. STI571 [Suspect]
     Active Substance: IMATINIB MESYLATE
     Indication: OFF LABEL USE
     Dosage: 200 MG, BID
     Route: 048
  4. METHOTREXATE [Concomitant]
     Active Substance: METHOTREXATE
     Indication: GRAFT VERSUS HOST DISEASE IN SKIN
     Dosage: LOW DOSE
     Route: 048

REACTIONS (9)
  - Pigmentation disorder [Unknown]
  - Alopecia [Unknown]
  - Joint stiffness [Unknown]
  - Fibrosis [Recovering/Resolving]
  - Graft versus host disease in skin [Recovering/Resolving]
  - Skin disorder [Recovering/Resolving]
  - Scleroderma [Not Recovered/Not Resolved]
  - Butterfly rash [Recovered/Resolved]
  - Rash [Recovered/Resolved]

NARRATIVE: CASE EVENT DATE: 20111026
